FAERS Safety Report 11726718 (Version 2)
Quarter: 2015Q4

REPORT INFORMATION
  Report Type: Spontaneous
  Country: IT (occurrence: IT)
  Receive Date: 20151112
  Receipt Date: 20151207
  Transmission Date: 20160304
  Serious: Yes (Hospitalization)
  Sender: FDA-Public Use
  Company Number: IT-ROCHE-1659698

PATIENT
  Age: 84 Year
  Sex: Female

DRUGS (5)
  1. OMEPRAZEN [Concomitant]
     Active Substance: OMEPRAZOLE
     Dosage: 20 MG GASTRO-RESISTANT HARD CAPSULES 14 CAPSULES
     Route: 048
  2. RIVOTRIL [Suspect]
     Active Substance: CLONAZEPAM
     Indication: AGITATION
     Dosage: ^2.5 MG/ML ORAL DROPS, SOLUTION^ 10 ML BOTTLE
     Route: 048
     Dates: start: 20150715, end: 20150716
  3. ATENOLOL/CHLORTHALIDONE [Concomitant]
     Active Substance: ATENOLOL\CHLORTHALIDONE
     Route: 048
  4. QUETIAPINE [Concomitant]
     Active Substance: QUETIAPINE
     Route: 048
  5. TORVAST [Concomitant]
     Active Substance: ATORVASTATIN
     Dosage: ^20^ 30 TABLETS, 20 MG
     Route: 048

REACTIONS (1)
  - Sopor [Unknown]

NARRATIVE: CASE EVENT DATE: 20150716
